FAERS Safety Report 11052878 (Version 3)
Quarter: 2015Q2

REPORT INFORMATION
  Report Type: Report from Study
  Country: AU (occurrence: None)
  Receive Date: 20150417
  Receipt Date: 20150622
  Transmission Date: 20150821
  Serious: Yes (Hospitalization)
  Sender: FDA-Public Use
  Company Number: 2014MPI01155

PATIENT
  Age: 69 Year
  Sex: Female
  Weight: 58 kg

DRUGS (4)
  1. DOXORUBICIN (DOXORUBICIN) INJECTION [Suspect]
     Active Substance: DOXORUBICIN
     Indication: HODGKIN^S DISEASE
     Dosage: 40 MG, Q14D, INTRAVENOUS
     Route: 042
     Dates: start: 20140619
  2. BRENTUXIMAB VEDOTIN [Suspect]
     Active Substance: BRENTUXIMAB VEDOTIN
     Indication: HODGKIN^S DISEASE
     Dosage: 70 MG, Q14D, INTRAVENOUS
     Route: 042
     Dates: start: 20140619, end: 20140727
  3. VINBLASTINE (VINBLASTINE) INJECTION [Suspect]
     Active Substance: VINBLASTINE
     Indication: HODGKIN^S DISEASE
     Dosage: 10 MG, Q14D, INTRAVENOUS?
     Route: 042
     Dates: start: 20140619
  4. DACARBAZINE (DACARBAZINE) INJECTION [Suspect]
     Active Substance: DACARBAZINE
     Indication: HODGKIN^S DISEASE
     Dosage: 620 MG, Q14D, INTRAVENOUS
     Route: 042
     Dates: start: 20140619, end: 20140828

REACTIONS (9)
  - Vomiting [None]
  - Hallucination [None]
  - Alopecia [None]
  - Abdominal pain [None]
  - Nausea [None]
  - Blood chloride decreased [None]
  - Dehydration [None]
  - Blood sodium decreased [None]
  - Hyponatraemia [None]

NARRATIVE: CASE EVENT DATE: 20140905
